FAERS Safety Report 21222394 (Version 1)
Quarter: 2022Q3

REPORT INFORMATION
  Report Type: Spontaneous
  Country: US (occurrence: US)
  Receive Date: 20220817
  Receipt Date: 20220817
  Transmission Date: 20221027
  Serious: Yes (Death, Other)
  Sender: FDA-Public Use
  Company Number: US-NOVARTISPH-NVSC2022US185245

PATIENT
  Age: 19 Month
  Sex: Male

DRUGS (11)
  1. TACROLIMUS [Suspect]
     Active Substance: TACROLIMUS
     Indication: Heart transplant
     Dosage: UNK
     Route: 065
  2. TACROLIMUS [Suspect]
     Active Substance: TACROLIMUS
     Indication: Immunosuppressant drug therapy
  3. MYCOPHENOLATE MOFETIL [Concomitant]
     Active Substance: MYCOPHENOLATE MOFETIL
     Indication: Heart transplant
     Dosage: 20 MG/KG, BID
     Route: 065
  4. MYCOPHENOLATE MOFETIL [Concomitant]
     Active Substance: MYCOPHENOLATE MOFETIL
     Indication: Immunosuppressant drug therapy
  5. VALGANCICLOVIR [Concomitant]
     Active Substance: VALGANCICLOVIR
     Indication: Antiviral prophylaxis
     Dosage: UNK
     Route: 065
  6. ATOVAQUONE [Concomitant]
     Active Substance: ATOVAQUONE
     Indication: Antifungal prophylaxis
     Dosage: UNK
     Route: 065
  7. RANITIDINE [Concomitant]
     Active Substance: RANITIDINE
     Indication: Oesophagitis ulcerative
     Dosage: UNK
     Route: 065
  8. PANTOPRAZOLE [Concomitant]
     Active Substance: PANTOPRAZOLE
     Indication: Oesophagitis ulcerative
     Dosage: UNK
     Route: 065
  9. OMEPRAZOLE [Concomitant]
     Active Substance: OMEPRAZOLE
     Indication: Oesophagitis ulcerative
     Dosage: UNK
     Route: 048
  10. VANCOMYCIN [Concomitant]
     Active Substance: VANCOMYCIN
     Indication: Pyrexia
     Dosage: UNK
     Route: 065
  11. CEFEPIME [Concomitant]
     Active Substance: CEFEPIME HYDROCHLORIDE
     Indication: Pyrexia
     Dosage: UNK
     Route: 065

REACTIONS (2)
  - Organising pneumonia [Fatal]
  - Drug level increased [Unknown]
